FAERS Safety Report 5063902-1 (Version None)
Quarter: 2006Q3

REPORT INFORMATION
  Report Type: 
  Country: None (occurrence: None)
  Receive Date: 20060724
  Receipt Date: 20060711
  Transmission Date: 20061208
  Serious: Yes (Hospitalization, Other)
  Sender: FDA-Public Use
  Company Number: 2006057361

PATIENT
  Age: 60 Year
  Sex: Male
  Weight: 91.6266 kg

DRUGS (3)
  1. CELEBREX [Suspect]
     Indication: ARTHRALGIA
  2. CELEBREX [Suspect]
     Indication: RHEUMATOID ARTHRITIS
  3. INSULIN [Concomitant]

REACTIONS (11)
  - ARTHRALGIA [None]
  - BACK INJURY [None]
  - CEREBRAL ISCHAEMIA [None]
  - CEREBROVASCULAR ACCIDENT [None]
  - FACIAL PALSY [None]
  - FALL [None]
  - JOINT SWELLING [None]
  - KNEE OPERATION [None]
  - LIMB INJURY [None]
  - NECK INJURY [None]
  - SECONDARY SYPHILIS [None]
